FAERS Safety Report 15728596 (Version 2)
Quarter: 2018Q4

REPORT INFORMATION
  Report Type: Spontaneous
  Country: US (occurrence: US)
  Receive Date: 20181217
  Receipt Date: 20181219
  Transmission Date: 20190205
  Serious: No
  Sender: FDA-Public Use
  Company Number: US-PFIZER INC-2018376871

PATIENT
  Age: 12 Year
  Sex: Male
  Weight: 47.63 kg

DRUGS (1)
  1. GENOTROPIN [Suspect]
     Active Substance: SOMATROPIN
     Indication: SILVER-RUSSELL SYNDROME
     Dosage: 1.7 MG, DAILY (ALTERNATING DOSE OF 1.6MG AND 1.8MG 7 DAYS A WEEK)

REACTIONS (6)
  - Pollakiuria [Unknown]
  - Product dose omission [Unknown]
  - Arthralgia [Unknown]
  - Product prescribing error [Unknown]
  - Headache [Unknown]
  - Product use in unapproved indication [Unknown]
